FAERS Safety Report 19456381 (Version 3)
Quarter: 2021Q3

REPORT INFORMATION
  Report Type: Spontaneous
  Country: US (occurrence: US)
  Receive Date: 20210624
  Receipt Date: 20210719
  Transmission Date: 20211014
  Serious: Yes (Hospitalization, Other)
  Sender: FDA-Public Use
  Company Number: US-HIKMA PHARMACEUTICALS USA INC.-US-H14001-21-02876

PATIENT
  Age: 70 Year
  Sex: Male
  Weight: 90.9 kg

DRUGS (6)
  1. LEUCOVORIN. [Suspect]
     Active Substance: LEUCOVORIN
     Indication: CHOLANGIOCARCINOMA
     Dosage: 400 MG/M2
     Route: 042
     Dates: start: 20210222, end: 20210524
  2. CEFUROXIME. [Suspect]
     Active Substance: CEFUROXIME
     Indication: PNEUMONIA
     Dosage: UNKNOWN
     Route: 065
  3. NIVOLUMAB [Suspect]
     Active Substance: NIVOLUMAB
     Indication: CHOLANGIOCARCINOMA
     Route: 042
     Dates: start: 20210222, end: 20210524
  4. AZITHROMYCIN ANHYDROUS. [Suspect]
     Active Substance: AZITHROMYCIN ANHYDROUS
     Indication: PNEUMONIA
     Dosage: UNKNOWN
     Route: 065
  5. FLUOROURACIL. [Suspect]
     Active Substance: FLUOROURACIL
     Indication: CHOLANGIOCARCINOMA
     Dosage: 2400 MG/M2
     Route: 042
     Dates: start: 20210222, end: 20210524
  6. IRINOTECAN [Suspect]
     Active Substance: IRINOTECAN
     Indication: CHOLANGIOCARCINOMA
     Dosage: 70 MG/M2
     Route: 042
     Dates: start: 20210222, end: 20210524

REACTIONS (5)
  - Pyrexia [Unknown]
  - Pneumonia [Unknown]
  - Hypoxia [Unknown]
  - Cough [Unknown]
  - Pneumonitis [Recovered/Resolved]

NARRATIVE: CASE EVENT DATE: 20210520
